FAERS Safety Report 9086654 (Version 1)
Quarter: 2013Q1

REPORT INFORMATION
  Report Type: Report from Study
  Country: US (occurrence: US)
  Receive Date: 20130131
  Receipt Date: 20130131
  Transmission Date: 20140127
  Serious: No
  Sender: FDA-Public Use
  Company Number: US-ABBOTT-12P-163-0993775-00

PATIENT
  Sex: Female
  Weight: 76.27 kg

DRUGS (9)
  1. HUMIRA [Suspect]
     Indication: RHEUMATOID ARTHRITIS
     Route: 058
     Dates: start: 20120910
  2. OMEPRAZOLE [Concomitant]
     Indication: DYSPEPSIA
  3. FOLIC ACID [Concomitant]
     Indication: VITAMIN SUPPLEMENTATION
  4. LEFLUNOMIDE [Concomitant]
     Indication: RHEUMATOID ARTHRITIS
  5. ZOLPIDEM [Concomitant]
     Indication: INSOMNIA
  6. VENTOLIN [Concomitant]
     Indication: EMPHYSEMA
  7. CYCLOBENZAPRINE HYDROCHLORIDE [Concomitant]
     Indication: MUSCLE SPASMS
  8. PREMARIN [Concomitant]
     Indication: HORMONE REPLACEMENT THERAPY
     Dates: start: 2001, end: 20120914
  9. PREMARIN [Concomitant]
     Dosage: SAME DOSE AS PREVIOUS
     Dates: start: 20120914

REACTIONS (4)
  - Insomnia [Not Recovered/Not Resolved]
  - Muscle spasms [Not Recovered/Not Resolved]
  - Pain [Not Recovered/Not Resolved]
  - Pain [Not Recovered/Not Resolved]
